FAERS Safety Report 23229609 (Version 1)
Quarter: 2023Q4

REPORT INFORMATION
  Report Type: Spontaneous
  Country: US (occurrence: None)
  Receive Date: 20231127
  Receipt Date: 20231127
  Transmission Date: 20240109
  Serious: No
  Sender: FDA-Public Use
  Company Number: US-ROCHE-3371367

PATIENT
  Sex: Male
  Weight: 40.134 kg

DRUGS (1)
  1. PULMOZYME [Suspect]
     Active Substance: DORNASE ALFA
     Indication: Chronic respiratory disease
     Dosage: CONCENTRATION 1 MG/ML, AMPULES?ON 15/JUN/2023 LAST DOSE GIVEN AT 1 AM
     Route: 055
     Dates: start: 202202

REACTIONS (2)
  - Off label use [Unknown]
  - No adverse event [Unknown]

NARRATIVE: CASE EVENT DATE: 20220201
